FAERS Safety Report 13825653 (Version 1)
Quarter: 2017Q3

REPORT INFORMATION
  Report Type: Spontaneous
  Country: FR (occurrence: FR)
  Receive Date: 20170802
  Receipt Date: 20170802
  Transmission Date: 20171127
  Serious: No
  Sender: FDA-Public Use
  Company Number: FR-009507513-1701FRA008805

PATIENT
  Age: 88 Year
  Sex: Female

DRUGS (2)
  1. DIPROSONE [Suspect]
     Active Substance: BETAMETHASONE DIPROPIONATE
     Dosage: 1 DF SINGLE DOSE
     Route: 047
     Dates: start: 20161201, end: 20161201
  2. FLUIDABAK [Concomitant]
     Active Substance: POVIDONE
     Dosage: UNK

REACTIONS (3)
  - Drug administration error [Unknown]
  - Eye irritation [Recovered/Resolved]
  - Incorrect route of drug administration [Unknown]

NARRATIVE: CASE EVENT DATE: 20161201
